FAERS Safety Report 7366138-4 (Version None)
Quarter: 2011Q1

REPORT INFORMATION
  Report Type: 
  Country: None (occurrence: None)
  Receive Date: 20110317
  Receipt Date: 20110317
  Transmission Date: 20110831
  Serious: Yes (Hospitalization)
  Sender: FDA-Public Use
  Company Number: None

PATIENT
  Sex: Female
  Weight: 74.84 kg

DRUGS (5)
  1. DOXIL [Suspect]
     Dosage: 74 MG
  2. RITUXIMAB (MOAB C2B8 ANTI CD20, CHIMERIC) [Suspect]
     Dosage: 690 MG
  3. PREDNISONE [Suspect]
     Dosage: 500 MG
  4. VINCRISTINE SULFATE [Suspect]
     Dosage: 2 MG
  5. CYCLOPHOSPHAMIDE [Suspect]
     Dosage: 1380 MG

REACTIONS (1)
  - NEUTROPENIA [None]
